FAERS Safety Report 8165602-8 (Version None)
Quarter: 2012Q1

REPORT INFORMATION
  Report Type: 
  Country: None (occurrence: None)
  Receive Date: 20120227
  Receipt Date: 20120216
  Transmission Date: 20120608
  Serious: Yes (Other)
  Sender: FDA-Public Use
  Company Number: US-SANOFI-AVENTIS-2012SA011322

PATIENT
  Sex: Female

DRUGS (4)
  1. DRUG USED IN DIABETES [Concomitant]
  2. LANTUS [Suspect]
     Indication: DIABETES MELLITUS
     Dosage: DOSE:30 UNIT(S)
     Route: 058
     Dates: start: 20110101
  3. ANTIHYPERTENSIVES [Concomitant]
  4. SOLOSTAR [Suspect]
     Indication: DIABETES MELLITUS
     Dates: start: 20110101

REACTIONS (2)
  - ADVERSE REACTION [None]
  - DEAFNESS [None]
